FAERS Safety Report 16789504 (Version 1)
Quarter: 2019Q3

REPORT INFORMATION
  Report Type: Spontaneous
  Country: PT (occurrence: PT)
  Receive Date: 20190910
  Receipt Date: 20190910
  Transmission Date: 20191005
  Serious: Yes (Hospitalization, Other)
  Sender: FDA-Public Use
  Company Number: PT-ACCORD-153879

PATIENT
  Age: 39 Year
  Sex: Male

DRUGS (3)
  1. IBUPROFEN. [Suspect]
     Active Substance: IBUPROFEN
     Indication: PYREXIA
     Dates: start: 201806, end: 2018
  2. ALLOPURINOL. [Suspect]
     Active Substance: ALLOPURINOL
     Indication: HYPERURICAEMIA
     Dosage: MEDICATED IRREGULARLY WITH ALLOPURINOL 100 MG QD FOR THE LAST DECADE GOUT CRISIS
     Dates: start: 2006, end: 2018
  3. RILMENIDINE/RILMENIDINE PHOSPHATE [Concomitant]
     Indication: HYPERTENSION

REACTIONS (5)
  - Tubulointerstitial nephritis [Recovering/Resolving]
  - Glomerulonephritis [Recovering/Resolving]
  - Self-medication [Recovering/Resolving]
  - Chronic kidney disease [Recovering/Resolving]
  - Condition aggravated [Unknown]

NARRATIVE: CASE EVENT DATE: 2010
